FAERS Safety Report 23222146 (Version 2)
Quarter: 2024Q1

REPORT INFORMATION
  Report Type: Report from Study
  Country: US (occurrence: US)
  Receive Date: 20231123
  Receipt Date: 20240112
  Transmission Date: 20240409
  Serious: Yes (Death, Other)
  Sender: FDA-Public Use
  Company Number: US-002147023-NVSC2023US248958

PATIENT
  Age: 74 Year
  Sex: Male
  Weight: 54.61 kg

DRUGS (2)
  1. ENTRESTO [Suspect]
     Active Substance: SACUBITRIL\VALSARTAN
     Indication: Cardiac failure
     Dosage: UNK (24 MS)
     Route: 048
     Dates: start: 20230720
  2. ENTRESTO [Suspect]
     Active Substance: SACUBITRIL\VALSARTAN
     Dosage: UNK (26 MS)
     Route: 048
     Dates: end: 20230913

REACTIONS (4)
  - Cardiac failure [Fatal]
  - Ischaemic cardiomyopathy [Unknown]
  - Right ventricular failure [Unknown]
  - Ejection fraction abnormal [Unknown]

NARRATIVE: CASE EVENT DATE: 20230928
